FAERS Safety Report 7519539-5 (Version None)
Quarter: 2011Q2

REPORT INFORMATION
  Report Type: 
  Country: None (occurrence: None)
  Receive Date: 20110524
  Receipt Date: 20110509
  Transmission Date: 20111010
  Serious: Yes (Other)
  Sender: FDA-Public Use
  Company Number: AUR-APL-2011-01644

PATIENT
  Sex: Female
  Weight: 82 kg

DRUGS (5)
  1. MAXALT [Concomitant]
  2. SUMATRIPTAN SUCCINATE [Concomitant]
  3. TOPIRAMATE [Suspect]
     Dosage: 50MG-BID-ORAL
     Route: 048
     Dates: start: 20110308
  4. SUMATRIPTAN SUCCINATE [Concomitant]
  5. DOMPERIDONE [Concomitant]

REACTIONS (3)
  - CONFUSIONAL STATE [None]
  - PARAESTHESIA [None]
  - AMNESIA [None]
